FAERS Safety Report 6504349-8 (Version None)
Quarter: 2009Q4

REPORT INFORMATION
  Report Type: 
  Country: None (occurrence: None)
  Receive Date: 20091217
  Receipt Date: 20091210
  Transmission Date: 20100525
  Serious: Yes (Hospitalization)
  Sender: FDA-Public Use
  Company Number: US-ELI_LILLY_AND_COMPANY-US200912003498

PATIENT
  Sex: Female

DRUGS (3)
  1. HUMULIN N [Suspect]
     Indication: DIABETES MELLITUS
     Dosage: 27 U, EACH MORNING
     Dates: start: 20040101
  2. HUMULIN N [Suspect]
     Dosage: 10 U, EACH EVENING
     Dates: start: 20040101
  3. LANTUS [Concomitant]

REACTIONS (7)
  - ANAEMIA [None]
  - BLOOD GLUCOSE DECREASED [None]
  - BLOOD GLUCOSE INCREASED [None]
  - DRUG INEFFECTIVE [None]
  - DYSPNOEA [None]
  - POOR QUALITY DRUG ADMINISTERED [None]
  - STAPHYLOCOCCAL INFECTION [None]
